FAERS Safety Report 7313332-4 (Version None)
Quarter: 2011Q1

REPORT INFORMATION
  Report Type: 
  Country: None (occurrence: None)
  Receive Date: 20110215
  Receipt Date: 20110215
  Transmission Date: 20110831
  Serious: Yes (Other)
  Sender: FDA-Public Use
  Company Number: None

PATIENT
  Sex: Female
  Weight: 56.6996 kg

DRUGS (1)
  1. MIRENA [Suspect]
     Indication: INTRA-UTERINE CONTRACEPTIVE DEVICE INSERTION
     Dosage: EVERY 5 YEARS VAG
     Route: 067
     Dates: start: 20101001, end: 20110214

REACTIONS (7)
  - DYSMENORRHOEA [None]
  - DEPRESSION [None]
  - ALOPECIA [None]
  - ACNE [None]
  - AMENORRHOEA [None]
  - AGGRESSION [None]
  - CRYING [None]
